FAERS Safety Report 17680463 (Version 2)
Quarter: 2020Q2

REPORT INFORMATION
  Report Type: Spontaneous
  Country: CN (occurrence: CN)
  Receive Date: 20200417
  Receipt Date: 20200418
  Transmission Date: 20200714
  Serious: Yes (Life-Threatening)
  Sender: FDA-Public Use
  Company Number: CN-ABBVIE-20P-035-3368292-00

PATIENT
  Age: 79 Year
  Sex: Female
  Weight: 50 kg

DRUGS (2)
  1. LEVOFLOXACIN. [Concomitant]
     Active Substance: LEVOFLOXACIN
     Indication: HELICOBACTER INFECTION
     Route: 048
     Dates: start: 20200401, end: 20200409
  2. KLACID [Suspect]
     Active Substance: CLARITHROMYCIN
     Indication: HELICOBACTER INFECTION
     Route: 048
     Dates: start: 20200401, end: 20200405

REACTIONS (4)
  - Cold sweat [Recovered/Resolved]
  - Dizziness [Recovered/Resolved]
  - Dysstasia [Recovered/Resolved]
  - Hypotension [Recovered/Resolved]

NARRATIVE: CASE EVENT DATE: 20200405
